FAERS Safety Report 9995849 (Version 1)
Quarter: 2014Q1

REPORT INFORMATION
  Report Type: Spontaneous
  Country: US (occurrence: None)
  Receive Date: 20140225
  Receipt Date: 20140225
  Transmission Date: 20141002
  Serious: Yes (Other)
  Sender: FDA-Public Use
  Company Number: 2013-380

PATIENT
  Age: 61 Year
  Sex: Male

DRUGS (1)
  1. PRIALT [Suspect]
     Indication: SPINAL PAIN
     Route: 037

REACTIONS (3)
  - Hallucination, visual [None]
  - Mental status changes [None]
  - Device issue [None]
